FAERS Safety Report 9055603 (Version 1)
Quarter: 2013Q1

REPORT INFORMATION
  Report Type: Spontaneous
  Country: US (occurrence: US)
  Receive Date: 20130206
  Receipt Date: 20130206
  Transmission Date: 20140127
  Serious: Yes (Other)
  Sender: FDA-Public Use
  Company Number: US-ELI_LILLY_AND_COMPANY-US201301008909

PATIENT
  Sex: Male

DRUGS (2)
  1. ADCIRCA [Suspect]
     Dosage: UNK
     Route: 065
  2. LETAIRIS [Concomitant]
     Dosage: 5 MG, QD
     Dates: start: 20120120

REACTIONS (1)
  - Syncope [Unknown]
